FAERS Safety Report 5291328-4 (Version None)
Quarter: 2007Q2

REPORT INFORMATION
  Report Type: 
  Country: None (occurrence: None)
  Receive Date: 20070403
  Receipt Date: 20070322
  Transmission Date: 20071010
  Serious: Yes (Congenital Anomaly, Other)
  Sender: FDA-Public Use
  Company Number: 16081

PATIENT
  Age: 38 Year
  Sex: Female

DRUGS (3)
  1. PACLITAXEL [Suspect]
     Indication: BREAST CANCER METASTATIC
     Dosage: 175 MG/M2
  2. TRASTUZUMAB [Suspect]
     Indication: BREAST CANCER METASTATIC
     Dosage: 8 MG/KG
  3. CORTICOSTEROIDS [Concomitant]

REACTIONS (8)
  - AMNIOTIC FLUID VOLUME DECREASED [None]
  - CAESAREAN SECTION [None]
  - DRUG EXPOSURE DURING PREGNANCY [None]
  - FOETAL DISORDER [None]
  - FOETAL GROWTH RETARDATION [None]
  - IMMATURE RESPIRATORY SYSTEM [None]
  - OLIGOHYDRAMNIOS [None]
  - RENAL FAILURE [None]
